FAERS Safety Report 17349103 (Version 1)
Quarter: 2020Q1

REPORT INFORMATION
  Report Type: Spontaneous
  Country: US (occurrence: US)
  Receive Date: 20200129
  Receipt Date: 20200129
  Transmission Date: 20200409
  Serious: Yes (Disabling)
  Sender: FDA-Public Use
  Company Number: None

PATIENT
  Age: 62 Year
  Sex: Male
  Weight: 87.75 kg

DRUGS (6)
  1. BUPROPION XL 300 MG [Suspect]
     Active Substance: BUPROPION
     Indication: DEPRESSION
     Dosage: ?          QUANTITY:1 TABLET(S);?
     Route: 048
     Dates: start: 20150110, end: 20191215
  2. VITAMIN B12 [Concomitant]
     Active Substance: CYANOCOBALAMIN
  3. DAILY  MULTIVITAMIN [Concomitant]
     Active Substance: VITAMINS
  4. BUPROPION XL 300 MG [Suspect]
     Active Substance: BUPROPION
     Indication: ANXIETY
     Dosage: ?          QUANTITY:1 TABLET(S);?
     Route: 048
     Dates: start: 20150110, end: 20191215
  5. BUPROPION XL 300  MG [Concomitant]
     Active Substance: BUPROPION
  6. ATENOLOL 10 MG [Concomitant]

REACTIONS (7)
  - Apathy [None]
  - Amnesia [None]
  - Product substitution issue [None]
  - Product quality issue [None]
  - Quality of life decreased [None]
  - Disturbance in attention [None]
  - Depression [None]

NARRATIVE: CASE EVENT DATE: 20150110
